FAERS Safety Report 5196040-8 (Version None)
Quarter: 2007Q1

REPORT INFORMATION
  Report Type: 
  Country: None (occurrence: None)
  Receive Date: 20070102
  Receipt Date: 20060713
  Transmission Date: 20070707
  Serious: Yes (Hospitalization)
  Sender: FDA-Public Use
  Company Number: KR-BAXTER-2006BH011794

PATIENT
  Age: 31 Year
  Sex: Male

DRUGS (3)
  1. FLAGYL I.V. RTU [Suspect]
     Indication: DIARRHOEA
     Route: 065
  2. PREDNISOLONE [Concomitant]
     Indication: DIARRHOEA
     Route: 065
  3. SULFASALAZINE [Concomitant]
     Indication: DIARRHOEA
     Route: 065

REACTIONS (4)
  - CONFUSIONAL STATE [None]
  - DEPRESSED LEVEL OF CONSCIOUSNESS [None]
  - ENCEPHALOPATHY [None]
  - INCORRECT DOSE ADMINISTERED [None]
